FAERS Safety Report 13685663 (Version 1)
Quarter: 2017Q2

REPORT INFORMATION
  Report Type: Spontaneous
  Country: US (occurrence: US)
  Receive Date: 20170623
  Receipt Date: 20170623
  Transmission Date: 20170830
  Serious: No
  Sender: FDA-Public Use
  Company Number: US-ROCHE-CID000000002129946

PATIENT
  Sex: Female

DRUGS (1)
  1. CELLCEPT [Suspect]
     Active Substance: MYCOPHENOLATE MOFETIL\MYCOPHENOLATE MOFETIL HYDROCHLORIDE
     Indication: DERMATOMYOSITIS
     Route: 048

REACTIONS (8)
  - Swelling [Not Recovered/Not Resolved]
  - Rash pruritic [Not Recovered/Not Resolved]
  - Malaise [Unknown]
  - Rash [Not Recovered/Not Resolved]
  - Incorrect dose administered [Unknown]
  - Cellulitis [Recovered/Resolved]
  - Acne [Not Recovered/Not Resolved]
  - Treatment noncompliance [Unknown]
